FAERS Safety Report 8093212-X (Version None)
Quarter: 2012Q1

REPORT INFORMATION
  Report Type: 
  Country: None (occurrence: None)
  Receive Date: 20120128
  Receipt Date: 20110915
  Transmission Date: 20120608
  Serious: No
  Sender: FDA-Public Use
  Company Number: US-ABBOTT-11P-163-0718219-00

PATIENT
  Age: 55 Year
  Sex: Male

DRUGS (9)
  1. METHOTREXATE [Concomitant]
     Indication: ARTHRITIS
  2. HUMIRA [Suspect]
     Indication: PSORIASIS
     Dates: start: 20101201
  3. INDOMETHACIN [Concomitant]
     Indication: ARTHRITIS
     Dosage: TWICE DAILY
     Route: 048
  4. PIROXICAM [Concomitant]
     Indication: ARTHRITIS
  5. SULFASALAZINE [Concomitant]
     Indication: PSORIASIS
     Dates: start: 19900101
  6. CLONIDINE [Concomitant]
     Indication: BLOOD PRESSURE
  7. AMLODIPINE [Concomitant]
     Indication: BLOOD PRESSURE
     Dosage: BID
     Route: 048
  8. LISINOPRIL [Concomitant]
     Indication: BLOOD PRESSURE
     Dosage: BID
     Route: 048
  9. VICODIN [Concomitant]
     Indication: PAIN
     Dosage: PRN

REACTIONS (3)
  - ARTHRALGIA [None]
  - DRUG INEFFECTIVE [None]
  - PSORIASIS [None]
